FAERS Safety Report 7064872-7 (Version None)
Quarter: 2010Q4

REPORT INFORMATION
  Report Type: 
  Country: None (occurrence: None)
  Receive Date: 20101027
  Receipt Date: 20101017
  Transmission Date: 20110411
  Serious: Yes (Hospitalization)
  Sender: FDA-Public Use
  Company Number: JP-NOVOPROD-301857

PATIENT
  Age: 10 Month
  Sex: Male
  Weight: 6 kg

DRUGS (1)
  1. GLUCAGON [Suspect]
     Indication: GLUCAGON TOLERANCE TEST
     Dosage: 0.2 MG, QD
     Route: 042
     Dates: start: 20090424, end: 20090424

REACTIONS (2)
  - HYPOGLYCAEMIA [None]
  - LACTIC ACIDOSIS [None]
